FAERS Safety Report 22119749 (Version 1)
Quarter: 2023Q1

REPORT INFORMATION
  Report Type: Spontaneous
  Country: US (occurrence: None)
  Receive Date: 20230320
  Receipt Date: 20230320
  Transmission Date: 20230417
  Serious: Yes (Life-Threatening, Hospitalization)
  Sender: FDA-Public Use
  Company Number: None

PATIENT
  Age: 30 Year
  Sex: Female
  Weight: 69.3 kg

DRUGS (23)
  1. NORGESTIMATE AND ETHINYL ESTRADIOL [Suspect]
     Active Substance: ETHINYL ESTRADIOL\NORGESTIMATE
     Indication: Menstruation irregular
     Dosage: OTHER STRENGTH : MG-MCG;?OTHER QUANTITY : 1 TABLET(S);?
     Route: 048
     Dates: start: 20190601, end: 20230305
  2. ALBUTEROL [Concomitant]
     Active Substance: ALBUTEROL
  3. Nebu [Concomitant]
  4. MCG/ACT Aers [Concomitant]
  5. APIXABAN [Concomitant]
     Active Substance: APIXABAN
  6. BACLOFEN [Concomitant]
     Active Substance: BACLOFEN
  7. BUSPAR [Concomitant]
     Active Substance: BUSPIRONE HYDROCHLORIDE
  8. CLONAZEPAM [Concomitant]
     Active Substance: CLONAZEPAM
  9. DOXYCYCLINE HYCLATE [Concomitant]
     Active Substance: DOXYCYCLINE HYCLATE
  10. DULERA [Concomitant]
     Active Substance: FORMOTEROL FUMARATE DIHYDRATE\MOMETASONE FUROATE
  11. EPINEPHRINE [Concomitant]
     Active Substance: EPINEPHRINE
  12. FLONASE [Concomitant]
     Active Substance: FLUTICASONE PROPIONATE
  13. FLOVENT [Concomitant]
     Active Substance: FLUTICASONE PROPIONATE
  14. FLUOXETINE [Concomitant]
     Active Substance: FLUOXETINE HYDROCHLORIDE
  15. GABAPENTIN [Concomitant]
     Active Substance: GABAPENTIN
  16. LISINOPRIL [Concomitant]
     Active Substance: LISINOPRIL
  17. Loperamide (Imodium) [Concomitant]
  18. MECLIZINE [Concomitant]
     Active Substance: MECLIZINE HYDROCHLORIDE
  19. OMEPRAZOLE [Concomitant]
     Active Substance: OMEPRAZOLE
  20. ZOFRAN [Concomitant]
     Active Substance: ONDANSETRON HYDROCHLORIDE
  21. PROAIR HFA [Concomitant]
     Active Substance: ALBUTEROL SULFATE
  22. Promethazine (Phenergan) [Concomitant]
  23. Zyrtec/cetirizine hydrochloride [Concomitant]

REACTIONS (9)
  - Malaise [None]
  - Dizziness [None]
  - Vomiting [None]
  - Respiratory arrest [None]
  - Pulse absent [None]
  - Pulmonary embolism [None]
  - Renal embolism [None]
  - Intracardiac thrombus [None]
  - Myocardial injury [None]

NARRATIVE: CASE EVENT DATE: 20230305
